FAERS Safety Report 4745315-2 (Version None)
Quarter: 2005Q3

REPORT INFORMATION
  Report Type: 
  Country: None (occurrence: None)
  Receive Date: 20050812
  Receipt Date: 20050803
  Transmission Date: 20060218
  Serious: Yes (Death, Hospitalization)
  Sender: FDA-Public Use
  Company Number: 430020N05FRA

PATIENT
  Age: 49 Year
  Sex: Female

DRUGS (4)
  1. MITOXANTRONE [Suspect]
     Indication: MULTIPLE SCLEROSIS
     Dosage: SEE IMAGE
     Dates: start: 20040823, end: 20050418
  2. METHYLPREDNISOLONE [Concomitant]
  3. GABAPENTIN [Concomitant]
  4. CODEINE [Concomitant]

REACTIONS (21)
  - ABDOMINAL PAIN UPPER [None]
  - ALANINE AMINOTRANSFERASE INCREASED [None]
  - BLOOD ALKALINE PHOSPHATASE INCREASED [None]
  - BREAST CANCER STAGE IV [None]
  - BREAST MASS [None]
  - CONJUNCTIVAL DISORDER [None]
  - COUGH [None]
  - ESCHERICHIA URINARY TRACT INFECTION [None]
  - GAMMA-GLUTAMYLTRANSFERASE INCREASED [None]
  - HYPOTENSION [None]
  - INFLAMMATION [None]
  - JAUNDICE [None]
  - LUNG DISORDER [None]
  - LUNG NEOPLASM [None]
  - LUNG NEOPLASM MALIGNANT [None]
  - METASTASES TO LIVER [None]
  - METASTASES TO SPINE [None]
  - MICROCYTIC ANAEMIA [None]
  - MICTURITION DISORDER [None]
  - VOMITING [None]
  - WEIGHT DECREASED [None]
